FAERS Safety Report 9564765 (Version 3)
Quarter: 2014Q1

REPORT INFORMATION
  Report Type: Spontaneous
  Country: IE (occurrence: IE)
  Receive Date: 20130930
  Receipt Date: 20140110
  Transmission Date: 20141002
  Serious: Yes (Hospitalization)
  Sender: FDA-Public Use
  Company Number: PHFR2013IE003869

PATIENT
  Age: 34 Year
  Sex: Male

DRUGS (3)
  1. CLOZARIL [Suspect]
     Indication: SCHIZOPHRENIA
     Dosage: UNK
     Route: 048
     Dates: start: 20080312
  2. CLOZARIL [Suspect]
     Dosage: 300 MG,
     Route: 048
     Dates: start: 20130704
  3. CLOZARIL [Suspect]
     Dosage: 400 MG, (100 MG MANE, 300 MG NOCTE)
     Route: 048

REACTIONS (3)
  - Circulatory collapse [Recovered/Resolved]
  - White blood cell count increased [Unknown]
  - Neutrophil count increased [Unknown]
